FAERS Safety Report 14996665 (Version 1)
Quarter: 2018Q2

REPORT INFORMATION
  Report Type: Spontaneous
  Country: US (occurrence: US)
  Receive Date: 20180518
  Receipt Date: 20180518
  Transmission Date: 20180711
  Serious: Yes (Disabling, Other)
  Sender: FDA-Public Use
  Company Number: None

PATIENT
  Age: 54 Year
  Sex: Female
  Weight: 52.62 kg

DRUGS (1)
  1. DOTAREM [Suspect]
     Active Substance: GADOTERATE MEGLUMINE

REACTIONS (8)
  - Impaired quality of life [None]
  - Contrast media toxicity [None]
  - Pain [None]
  - Dizziness [None]
  - Anxiety [None]
  - Feeling abnormal [None]
  - Bone pain [None]
  - Paraesthesia [None]

NARRATIVE: CASE EVENT DATE: 20180131
